FAERS Safety Report 8502222-7 (Version None)
Quarter: 2012Q3

REPORT INFORMATION
  Report Type: 
  Country: None (occurrence: None)
  Receive Date: 20120711
  Receipt Date: 20120703
  Transmission Date: 20120928
  Serious: Yes (Hospitalization)
  Sender: FDA-Public Use
  Company Number: PHEH2012US013221

PATIENT
  Sex: Female

DRUGS (9)
  1. NEXIUM [Concomitant]
  2. ZOCOR [Concomitant]
  3. COZAAR [Concomitant]
  4. METOPROLOL SUCCINATE [Suspect]
     Dosage: 50 MG, BID
  5. FUROSEMIDE [Concomitant]
     Dosage: 20 MG, UNK
  6. MULTIVITAMIN [Concomitant]
  7. POTASSIUM CHLORIDE [Concomitant]
     Dosage: 20 MG, UNK
  8. CALCIUM WITH VITAMIN D [Concomitant]
  9. D3 [Concomitant]

REACTIONS (2)
  - HEADACHE [None]
  - BLOOD GLUCOSE DECREASED [None]
